FAERS Safety Report 8010504-0 (Version None)
Quarter: 2011Q4

REPORT INFORMATION
  Report Type: 
  Country: None (occurrence: None)
  Receive Date: 20111222
  Receipt Date: 20111213
  Transmission Date: 20120403
  Serious: Yes (Hospitalization)
  Sender: FDA-Public Use
  Company Number: IMP_05483_2011

PATIENT
  Age: 73 Year
  Sex: Female
  Weight: 107 kg

DRUGS (12)
  1. VITAMIN D [Concomitant]
  2. GLIMEPIRIDE [Concomitant]
  3. ROSUVASTATIN [Concomitant]
  4. INSULIN DETEMIR [Concomitant]
  5. VITAMIN C [Concomitant]
  6. DIPYRIDAMOLE [Suspect]
     Indication: SCAN MYOCARDIAL PERFUSION
     Dosage: (0.57 MG/KG INTRAVENOUS (NOT OTHERWISE SPECIFIED))
     Route: 042
  7. ASPIRIN [Concomitant]
  8. FISH OIL [Concomitant]
  9. EXTENDED-RELEASE METOPROLOL [Concomitant]
  10. FOSINOPRIL SODIUM [Concomitant]
  11. SOTALOL HCL [Concomitant]
  12. METFORMIN HCL [Concomitant]

REACTIONS (8)
  - CARDIAC FAILURE CONGESTIVE [None]
  - PULMONARY OEDEMA [None]
  - LUNG INFILTRATION [None]
  - CIRCULATORY COLLAPSE [None]
  - PULSELESS ELECTRICAL ACTIVITY [None]
  - ANAPHYLACTIC REACTION [None]
  - ELECTROCARDIOGRAM ST-T CHANGE [None]
  - SHOCK [None]
